FAERS Safety Report 4872871-6 (Version None)
Quarter: 2006Q1

REPORT INFORMATION
  Report Type: 
  Country: None (occurrence: None)
  Receive Date: 20060105
  Receipt Date: 20040115
  Transmission Date: 20060701
  Serious: No
  Sender: FDA-Public Use
  Company Number: US-BRISTOL-MYERS SQUIBB COMPANY-12479291

PATIENT
  Age: 37 Year
  Sex: Male

DRUGS (1)
  1. SERZONE [Suspect]
     Indication: DEPRESSION
     Dates: start: 19990114, end: 20001130

REACTIONS (3)
  - HEPATIC ENZYME ABNORMAL [None]
  - HEPATITIS A [None]
  - HEPATOCELLULAR DAMAGE [None]
